FAERS Safety Report 23508092 (Version 2)
Quarter: 2024Q1

REPORT INFORMATION
  Report Type: Spontaneous
  Country: FR (occurrence: FR)
  Receive Date: 20240209
  Receipt Date: 20240222
  Transmission Date: 20240410
  Serious: Yes (Life-Threatening, Hospitalization, Other)
  Sender: FDA-Public Use
  Company Number: None

PATIENT
  Age: 2 Year
  Sex: Male
  Weight: 10 kg

DRUGS (11)
  1. CEFTRIAXONE [Suspect]
     Active Substance: CEFTRIAXONE\CEFTRIAXONE SODIUM
     Indication: Hyperthermia
     Dosage: CEFTRIAXONE SODIUM, TOTAL
     Route: 042
     Dates: start: 20231120, end: 20231120
  2. IBUPROFEN [Suspect]
     Active Substance: IBUPROFEN
     Indication: Pain
     Route: 065
     Dates: start: 20231118, end: 20231120
  3. AMITRIPTYLINE HYDROCHLORIDE [Suspect]
     Active Substance: AMITRIPTYLINE HYDROCHLORIDE
     Indication: Dystonia
     Route: 048
     Dates: end: 20231120
  4. CLONIDINE [Suspect]
     Active Substance: CLONIDINE
     Indication: Dystonia
     Route: 042
     Dates: start: 20231117, end: 20231117
  5. VANCOMYCIN HYDROCHLORIDE [Suspect]
     Active Substance: VANCOMYCIN HYDROCHLORIDE
     Indication: Hyperthermia
     Dosage: CHLORHYDRATE DE VANCOMYCINE, TOTAL
     Route: 042
     Dates: start: 20231120, end: 20231120
  6. GENTAMICIN SULFATE [Suspect]
     Active Substance: GENTAMICIN SULFATE
     Indication: Hyperthermia
     Dosage: N-METHYL GENTAMYCIN SULFATE
     Route: 042
     Dates: start: 20231120, end: 20231120
  7. ACETAMINOPHEN [Suspect]
     Active Substance: ACETAMINOPHEN
     Indication: Pain
     Route: 048
     Dates: start: 20231102, end: 20231123
  8. CLONIDINE [Suspect]
     Active Substance: CLONIDINE
     Indication: Dystonia
     Dosage: SCORED TABLET
     Route: 048
     Dates: start: 20231118, end: 20231120
  9. RIVOTRIL [Suspect]
     Active Substance: CLONAZEPAM
     Indication: Dystonia
     Route: 048
     Dates: start: 20231114, end: 20231116
  10. RIVOTRIL [Suspect]
     Active Substance: CLONAZEPAM
     Indication: Dystonia
     Route: 048
     Dates: start: 20231118, end: 20231120
  11. RIVOTRIL [Suspect]
     Active Substance: CLONAZEPAM
     Indication: Dystonia
     Route: 048
     Dates: start: 20231113

REACTIONS (7)
  - Hepatocellular injury [Recovering/Resolving]
  - Acute kidney injury [Recovered/Resolved]
  - Bradycardia [Recovered/Resolved]
  - Hyperthermia [Recovered/Resolved]
  - Accidental overdose [Recovered/Resolved]
  - Hypotension [Recovered/Resolved]
  - Incorrect dose administered [Recovered/Resolved]

NARRATIVE: CASE EVENT DATE: 20231117
